FAERS Safety Report 4335659-0 (Version None)
Quarter: 2004Q2

REPORT INFORMATION
  Report Type: 
  Country: None (occurrence: None)
  Receive Date: 20040406
  Receipt Date: 20040325
  Transmission Date: 20050107
  Serious: Yes (Hospitalization)
  Sender: FDA-Public Use
  Company Number: HQWYE139326MAR04

PATIENT
  Age: 65 Year
  Sex: Female
  Weight: 73 kg

DRUGS (12)
  1. MYLOTARG [Suspect]
     Indication: ACUTE MYELOID LEUKAEMIA
     Dosage: 15 MG 1X PER 1 DAY, INTRAVENOUS
     Route: 042
     Dates: start: 20040316, end: 20040316
  2. PLENDIL [Concomitant]
  3. DIABETA [Concomitant]
  4. ZYRTEC [Concomitant]
  5. BEXTRA [Concomitant]
  6. NEURONTIN [Concomitant]
  7. AVELOX [Concomitant]
  8. DIFLUCAN [Concomitant]
  9. VALTREX [Concomitant]
  10. ALLOPURINOL [Concomitant]
  11. LASIX [Concomitant]
  12. LORCET-HD [Concomitant]

REACTIONS (7)
  - FEBRILE NEUTROPENIA [None]
  - HAEMOGLOBIN DECREASED [None]
  - MALAISE [None]
  - NEUTROPHIL COUNT DECREASED [None]
  - PLATELET COUNT DECREASED [None]
  - PULMONARY OEDEMA [None]
  - WHITE BLOOD CELL COUNT DECREASED [None]
